FAERS Safety Report 25494503 (Version 1)
Quarter: 2025Q2

REPORT INFORMATION
  Report Type: Spontaneous
  Country: CA (occurrence: CA)
  Receive Date: 20250630
  Receipt Date: 20250630
  Transmission Date: 20250716
  Serious: Yes (Death, Other)
  Sender: GILEAD
  Company Number: CA-GILEAD-2025-0718737

PATIENT
  Age: 97 Year
  Sex: Female
  Weight: 51 kg

DRUGS (10)
  1. VEKLURY [Suspect]
     Active Substance: REMDESIVIR
     Indication: COVID-19
     Route: 042
  2. ACETAMINOPHEN [Suspect]
     Active Substance: ACETAMINOPHEN
     Indication: Product used for unknown indication
     Route: 048
  3. AZITHROMYCIN [Concomitant]
     Active Substance: AZITHROMYCIN
  4. BISOPROLOL [Concomitant]
     Active Substance: BISOPROLOL
  5. CEFTRIAXONE [Concomitant]
     Active Substance: CEFTRIAXONE
  6. ELIQUIS [Concomitant]
     Active Substance: APIXABAN
  7. FUROSEMIDE [Concomitant]
     Active Substance: FUROSEMIDE
  8. OXAZEPAM [Concomitant]
     Active Substance: OXAZEPAM
  9. PIPERACILLIN SODIUM\TAZOBACTAM SODIUM [Concomitant]
     Active Substance: PIPERACILLIN SODIUM\TAZOBACTAM SODIUM
  10. COBAMAMIDE [Concomitant]
     Active Substance: COBAMAMIDE

REACTIONS (7)
  - Acute kidney injury [Fatal]
  - COVID-19 [Fatal]
  - Cholangitis [Fatal]
  - General physical health deterioration [Fatal]
  - Hepatitis [Fatal]
  - Jaundice [Fatal]
  - Septic shock [Fatal]
